FAERS Safety Report 14916642 (Version 1)
Quarter: 2018Q2

REPORT INFORMATION
  Report Type: Spontaneous
  Country: DE (occurrence: DE)
  Receive Date: 20180519
  Receipt Date: 20180519
  Transmission Date: 20180711
  Serious: Yes (Hospitalization)
  Sender: FDA-Public Use
  Company Number: DE-AUROBINDO-AUR-APL-2018-026270

PATIENT
  Age: 72 Year
  Sex: Male

DRUGS (2)
  1. METAMIZOL                          /06276701/ [Concomitant]
     Active Substance: METAMIZOLE
     Indication: PRODUCT USED FOR UNKNOWN INDICATION
     Dosage: 500 MG, BEDARF ()
     Route: 065
  2. OXYCODONE [Suspect]
     Active Substance: OXYCODONE
     Indication: PRODUCT USED FOR UNKNOWN INDICATION
     Dosage: 40 MILLIGRAM, 1-0.5-0.5-0
     Route: 065

REACTIONS (7)
  - Accidental overdose [Unknown]
  - Dysarthria [Unknown]
  - Medication error [Unknown]
  - General physical health deterioration [Unknown]
  - Drug prescribing error [Unknown]
  - Confusional state [Unknown]
  - Somnolence [Unknown]
